FAERS Safety Report 21871547 (Version 1)
Quarter: 2023Q1

REPORT INFORMATION
  Report Type: Spontaneous
  Country: US (occurrence: None)
  Receive Date: 20230113
  Receipt Date: 20230113
  Transmission Date: 20230417
  Serious: No
  Sender: FDA-Public Use
  Company Number: None

PATIENT
  Age: 36 Year
  Sex: Female
  Weight: 68.85 kg

DRUGS (7)
  1. WEGOVY [Suspect]
     Active Substance: SEMAGLUTIDE
     Indication: Obesity
     Dosage: OTHER QUANTITY : 1 INJECTION(S);?OTHER FREQUENCY : WEEKLY;?
     Route: 058
     Dates: start: 20220531
  2. CIMZIA [Concomitant]
     Active Substance: CERTOLIZUMAB PEGOL
  3. NEXPLANON [Concomitant]
     Active Substance: ETONOGESTREL
  4. DULOXETINE [Concomitant]
     Active Substance: DULOXETINE
  5. D [Concomitant]
  6. VITAMIN B12 [Concomitant]
     Active Substance: CYANOCOBALAMIN
  7. LORATADINE [Concomitant]
     Active Substance: LORATADINE

REACTIONS (9)
  - Therapy interrupted [None]
  - Abdominal pain upper [None]
  - Back pain [None]
  - Pain in extremity [None]
  - Gastrointestinal disorder [None]
  - Allodynia [None]
  - Pelvic pain [None]
  - Pain of skin [None]
  - Neck pain [None]

NARRATIVE: CASE EVENT DATE: 20230104
